FAERS Safety Report 11695723 (Version 1)
Quarter: 2015Q4

REPORT INFORMATION
  Report Type: Spontaneous
  Country: US (occurrence: None)
  Receive Date: 20151103
  Receipt Date: 20151103
  Transmission Date: 20160304
  Serious: Yes (Disabling)
  Sender: FDA-Public Use
  Company Number: None

PATIENT
  Age: 35 Year
  Sex: Female
  Weight: 77.11 kg

DRUGS (6)
  1. MIRENA [Concomitant]
     Active Substance: LEVONORGESTREL
  2. CALCIUM [Concomitant]
     Active Substance: CALCIUM
  3. BUPROPION SR 150MG SUN PHARMA [Suspect]
     Active Substance: BUPROPION
     Indication: DEPRESSION
     Dosage: 2 IN AM 1 IN PM TWICE DAILY TAKEN BY MOUTH
     Route: 048
     Dates: start: 20150605, end: 20151005
  4. CETIRIZINE [Concomitant]
     Active Substance: CETIRIZINE HYDROCHLORIDE
  5. ARMOUR [Concomitant]
  6. L-LYSINE [Concomitant]
     Active Substance: LYSINE

REACTIONS (3)
  - Drug ineffective [None]
  - Depression [None]
  - Weight increased [None]

NARRATIVE: CASE EVENT DATE: 20151001
